FAERS Safety Report 4587462-4 (Version None)
Quarter: 2005Q1

REPORT INFORMATION
  Report Type: 
  Country: None (occurrence: None)
  Receive Date: 20050215
  Receipt Date: 20050202
  Transmission Date: 20050727
  Serious: Yes (Hospitalization)
  Sender: FDA-Public Use
  Company Number: 2005024246

PATIENT
  Age: 91 Year
  Sex: Male

DRUGS (4)
  1. MICRONASE [Suspect]
     Indication: DIABETES MELLITUS
     Dosage: 7.5 MG (3.5 MG,DAILY), ORAL
     Route: 048
     Dates: end: 20031105
  2. DONEPEZIL HCL [Concomitant]
  3. FOLACIN (CALCIUM PHOSPHATE, FOLIC ACID) [Concomitant]
  4. CYANOCOBALAMIN-TANNIN COMPLEX (CYANOCOBALAMIN-TANNIN COMPLEX) [Concomitant]

REACTIONS (6)
  - BLOOD GLUCOSE FLUCTUATION [None]
  - FACIAL SPASM [None]
  - MUSCLE SPASMS [None]
  - MYOCLONUS [None]
  - TENSION [None]
  - TREMOR [None]
